FAERS Safety Report 18079463 (Version 1)
Quarter: 2020Q3

REPORT INFORMATION
  Report Type: Spontaneous
  Country: US (occurrence: US)
  Receive Date: 20200728
  Receipt Date: 20200728
  Transmission Date: 20201103
  Serious: Yes (Life-Threatening, Hospitalization, Other)
  Sender: FDA-Public Use
  Company Number: US-HIKMA PHARMACEUTICALS USA INC.-US-H14001-20-03483

PATIENT
  Age: 53 Year
  Sex: Male
  Weight: 78 kg

DRUGS (2)
  1. PALBOCICLIB [Suspect]
     Active Substance: PALBOCICLIB
     Indication: ACUTE LYMPHOCYTIC LEUKAEMIA
     Route: 048
     Dates: start: 20200616
  2. DEXAMETHASONE. [Suspect]
     Active Substance: DEXAMETHASONE
     Indication: ACUTE LYMPHOCYTIC LEUKAEMIA
     Route: 065
     Dates: start: 20200623, end: 20200630

REACTIONS (9)
  - Thrombocytopenia [Recovered/Resolved]
  - COVID-19 [Unknown]
  - Factor VIII deficiency [Unknown]
  - Platelet disorder [Unknown]
  - Dyspnoea [Unknown]
  - Contusion [Unknown]
  - Haematochezia [Unknown]
  - Purpura [Unknown]
  - Petechiae [Unknown]

NARRATIVE: CASE EVENT DATE: 20200628
